FAERS Safety Report 6199851-5 (Version None)
Quarter: 2009Q2

REPORT INFORMATION
  Report Type: 
  Country: None (occurrence: None)
  Receive Date: 20090520
  Receipt Date: 20090520
  Transmission Date: 20091009
  Serious: Yes (Life-Threatening, Hospitalization)
  Sender: FDA-Public Use
  Company Number: None

PATIENT
  Age: 41 Year
  Sex: Male
  Weight: 93.4 kg

DRUGS (2)
  1. PANTOPRAZOLE SODIUM [Suspect]
     Indication: ABDOMINAL PAIN
     Dosage: 40 MG ONCE IV
     Route: 042
     Dates: start: 20090314, end: 20090314
  2. HYDROMORPHONE HCL [Suspect]
     Indication: PAIN
     Dosage: 4 MG ONCE IV
     Route: 042
     Dates: start: 20090313, end: 20090313

REACTIONS (2)
  - ANAPHYLACTIC REACTION [None]
  - REFUSAL OF TREATMENT BY PATIENT [None]
